FAERS Safety Report 17340889 (Version 1)
Quarter: 2020Q1

REPORT INFORMATION
  Report Type: Spontaneous
  Country: US (occurrence: US)
  Receive Date: 20200129
  Receipt Date: 20200129
  Transmission Date: 20200409
  Serious: No
  Sender: FDA-Public Use
  Company Number: US-ALLERGAN-1913388US

PATIENT
  Age: 25 Year
  Sex: Female

DRUGS (1)
  1. BOTOX COSMETIC [Suspect]
     Active Substance: ONABOTULINUMTOXINA
     Indication: BLEPHAROSPASM
     Dosage: ACTUAL: 0.5 UNITS PER EYELID, SINGLE
     Route: 030

REACTIONS (2)
  - Eyelid ptosis [Recovered/Resolved]
  - Application site bruise [Recovered/Resolved]
